FAERS Safety Report 25312529 (Version 1)
Quarter: 2025Q2

REPORT INFORMATION
  Report Type: Spontaneous
  Country: PL (occurrence: PL)
  Receive Date: 20250514
  Receipt Date: 20250514
  Transmission Date: 20250717
  Serious: Yes (Other)
  Sender: MYLAN
  Company Number: PL-MYLANLABS-2025M1039849

PATIENT
  Age: 29 Year
  Sex: Male

DRUGS (8)
  1. PAROXETINE [Interacting]
     Active Substance: PAROXETINE
     Indication: Premature ejaculation
  2. PAROXETINE [Interacting]
     Active Substance: PAROXETINE
     Route: 065
  3. PAROXETINE [Interacting]
     Active Substance: PAROXETINE
     Route: 065
  4. PAROXETINE [Interacting]
     Active Substance: PAROXETINE
  5. ACETAMINOPHEN\TRAMADOL [Interacting]
     Active Substance: ACETAMINOPHEN\TRAMADOL
     Indication: Headache
     Dosage: 1 DOSAGE FORM, TID (3 X 1 TABL. P.O.)
  6. ACETAMINOPHEN\TRAMADOL [Interacting]
     Active Substance: ACETAMINOPHEN\TRAMADOL
     Dosage: 1 DOSAGE FORM, TID (3 X 1 TABL. P.O.)
     Route: 048
  7. ACETAMINOPHEN\TRAMADOL [Interacting]
     Active Substance: ACETAMINOPHEN\TRAMADOL
     Dosage: 1 DOSAGE FORM, TID (3 X 1 TABL. P.O.)
     Route: 048
  8. ACETAMINOPHEN\TRAMADOL [Interacting]
     Active Substance: ACETAMINOPHEN\TRAMADOL
     Dosage: 1 DOSAGE FORM, TID (3 X 1 TABL. P.O.)

REACTIONS (3)
  - Serotonin syndrome [Unknown]
  - Potentiating drug interaction [Unknown]
  - Off label use [Unknown]
